FAERS Safety Report 19754079 (Version 1)
Quarter: 2021Q3

REPORT INFORMATION
  Report Type: Spontaneous
  Country: US (occurrence: US)
  Receive Date: 20210825
  Receipt Date: 20210825
  Transmission Date: 20211014
  Serious: No
  Sender: FDA-Public Use
  Company Number: None

PATIENT
  Age: 57 Year
  Sex: Male

DRUGS (1)
  1. KETAMINE HCL [Suspect]
     Active Substance: KETAMINE HYDROCHLORIDE
     Indication: PAIN
     Dosage: ?          OTHER ROUTE:IV?
     Dates: start: 20210602, end: 20210602

REACTIONS (4)
  - Salivary hypersecretion [None]
  - Subacute kidney injury [None]
  - Muscle spasms [None]
  - Mental status changes [None]

NARRATIVE: CASE EVENT DATE: 20210602
